FAERS Safety Report 4455607-2 (Version None)
Quarter: 2004Q3

REPORT INFORMATION
  Report Type: 
  Country: None (occurrence: None)
  Receive Date: 20040922
  Receipt Date: 20040910
  Transmission Date: 20050211
  Serious: Yes (Other)
  Sender: FDA-Public Use
  Company Number: FR-JNJFOC-20040903197

PATIENT
  Age: 40 Year
  Sex: Male

DRUGS (1)
  1. RISPERDAL [Suspect]
     Route: 049

REACTIONS (1)
  - DIABETES INSIPIDUS [None]
